FAERS Safety Report 17824100 (Version 1)
Quarter: 2020Q2

REPORT INFORMATION
  Report Type: Spontaneous
  Country: US (occurrence: US)
  Receive Date: 20200522
  Receipt Date: 20200522
  Transmission Date: 20200714
  Serious: Yes (Other)
  Sender: FDA-Public Use
  Company Number: None

PATIENT
  Age: 34 Year
  Sex: Male

DRUGS (1)
  1. HARVONI [Suspect]
     Active Substance: LEDIPASVIR\SOFOSBUVIR
     Indication: CHRONIC HEPATITIS C
     Dosage: ?          OTHER DOSE:90/400MG;?
     Route: 048
     Dates: start: 20200430

REACTIONS (3)
  - Pyrexia [None]
  - Therapy cessation [None]
  - Dehydration [None]

NARRATIVE: CASE EVENT DATE: 20200520
